FAERS Safety Report 12523597 (Version 1)
Quarter: 2016Q3

REPORT INFORMATION
  Report Type: Spontaneous
  Country: US (occurrence: US)
  Receive Date: 20160703
  Receipt Date: 20160703
  Transmission Date: 20161109
  Serious: No
  Sender: FDA-Public Use
  Company Number: US-BIOGEN-2016BI00259394

PATIENT
  Age: 56 Year
  Sex: Female

DRUGS (2)
  1. TYSABRI [Suspect]
     Active Substance: NATALIZUMAB
     Indication: MULTIPLE SCLEROSIS
     Route: 065
     Dates: start: 20080729, end: 20111115
  2. TYSABRI [Suspect]
     Active Substance: NATALIZUMAB
     Dates: start: 20160623

REACTIONS (1)
  - Fatigue [Recovered/Resolved]

NARRATIVE: CASE EVENT DATE: 20160624
